FAERS Safety Report 19931730 (Version 2)
Quarter: 2021Q4

REPORT INFORMATION
  Report Type: Other
  Country: US (occurrence: US)
  Receive Date: 20211007
  Receipt Date: 20211105
  Transmission Date: 20220304
  Serious: Yes (Hospitalization, Other)
  Sender: FDA-Public Use
  Company Number: US-COVIS PHARMA GMBH-2021COV24184

PATIENT
  Age: 28 Year
  Sex: Female

DRUGS (3)
  1. MAKENA [Suspect]
     Active Substance: HYDROXYPROGESTERONE CAPROATE
     Indication: Premature delivery
     Route: 058
     Dates: start: 20210528, end: 20210827
  2. VITAMINS [Concomitant]
     Active Substance: VITAMINS
     Indication: Pregnancy
     Dosage: TAKE 1 TABLE BY ORAL ROUTE EVERY DAY
     Route: 048
     Dates: start: 20210217
  3. VITAMINS [Concomitant]
     Active Substance: VITAMINS
     Indication: Breast feeding

REACTIONS (4)
  - Induced labour [Recovered/Resolved]
  - Pre-eclampsia [Unknown]
  - Blood pressure increased [Recovered/Resolved]
  - Premature delivery [Recovered/Resolved]

NARRATIVE: CASE EVENT DATE: 20210801
